FAERS Safety Report 17450897 (Version 1)
Quarter: 2020Q1

REPORT INFORMATION
  Report Type: Spontaneous
  Country: US (occurrence: US)
  Receive Date: 20200224
  Receipt Date: 20200224
  Transmission Date: 20200409
  Serious: No
  Sender: FDA-Public Use
  Company Number: US-BAYER-2020-031220

PATIENT
  Sex: Female

DRUGS (1)
  1. CLARITIN [Suspect]
     Active Substance: LORATADINE
     Indication: SLEEP DISORDER THERAPY
     Route: 065

REACTIONS (2)
  - Drug ineffective for unapproved indication [Unknown]
  - Insomnia [Unknown]
